FAERS Safety Report 12720050 (Version 1)
Quarter: 2016Q3

REPORT INFORMATION
  Report Type: Spontaneous
  Country: GB (occurrence: GB)
  Receive Date: 20160907
  Receipt Date: 20160907
  Transmission Date: 20161109
  Serious: Yes (Other)
  Sender: FDA-Public Use
  Company Number: GB-ACCORD-043703

PATIENT
  Age: 23 Year
  Sex: Female
  Weight: 65.31 kg

DRUGS (5)
  1. CHLORPHENAMINE/CHLORPHENAMINE MALEATE/CHLORPHENAMINE RESINATE/CHLORPHENAMINE TANNATE [Concomitant]
  2. CODEINE PHOSPHATE/PARACETAMOL [Concomitant]
  3. FEXOFENADINE/FEXOFENADINE HYDROCHLORIDE [Concomitant]
  4. OMEPRAZOLE. [Concomitant]
     Active Substance: OMEPRAZOLE
  5. AMITRIPTYLINE [Suspect]
     Active Substance: AMITRIPTYLINE
     Indication: PELVIC PAIN
     Route: 048
     Dates: start: 20160715, end: 20160816

REACTIONS (2)
  - Off label use [Unknown]
  - Dyspnoea [Recovering/Resolving]

NARRATIVE: CASE EVENT DATE: 20160720
